FAERS Safety Report 5162987-1 (Version None)
Quarter: 2006Q4

REPORT INFORMATION
  Report Type: 
  Country: None (occurrence: None)
  Receive Date: 20061201
  Receipt Date: 20061120
  Transmission Date: 20070319
  Serious: Yes (Disabling)
  Sender: FDA-Public Use
  Company Number: GB-ELI_LILLY_AND_COMPANY-GB200611003815

PATIENT
  Age: 52 Year
  Sex: Male
  Weight: 77.5 kg

DRUGS (6)
  1. FLUOXETINE [Suspect]
     Indication: DEPRESSION
     Dosage: 20 MG, UNKNOWN
     Route: 048
     Dates: start: 20060904, end: 20060919
  2. ATENOLOL [Concomitant]
     Indication: HYPERTENSION
     Dosage: 25 MG, UNKNOWN
     Route: 048
     Dates: start: 20040916
  3. DIAZEPAM [Concomitant]
     Dosage: 2 MG, UNKNOWN
     Route: 048
  4. LISINOPRIL [Concomitant]
     Indication: HYPERTENSION
     Dosage: 20 MG, UNKNOWN
     Route: 065
     Dates: start: 20051210
  5. RANITIDINE [Concomitant]
     Indication: DYSPEPSIA
     Dosage: 300 MG, UNKNOWN
     Route: 065
     Dates: start: 20050607
  6. SIMVASTATIN [Concomitant]
     Indication: ANXIETY
     Dosage: 40 MG, UNKNOWN
     Route: 048
     Dates: start: 20051021

REACTIONS (1)
  - JAUNDICE [None]
